FAERS Safety Report 8960560 (Version 1)
Quarter: 2012Q4

REPORT INFORMATION
  Report Type: Spontaneous
  Country: US (occurrence: None)
  Receive Date: 20121207
  Receipt Date: 20121207
  Transmission Date: 20130627
  Serious: Yes (Other)
  Sender: FDA-Public Use
  Company Number: None

PATIENT
  Age: 58 Year
  Sex: Male
  Weight: 102.06 kg

DRUGS (1)
  1. NEUPOGEN [Suspect]
     Indication: STEM CELL TRANSPLANT
     Dosage: 3 shots  daily for 5 days sq
     Route: 058
     Dates: start: 20110225, end: 20110301

REACTIONS (2)
  - Anosmia [None]
  - Ageusia [None]
